FAERS Safety Report 9793067 (Version 2)
Quarter: 2014Q1

REPORT INFORMATION
  Report Type: Other
  Country: GB (occurrence: GB)
  Receive Date: 20140102
  Receipt Date: 20140205
  Transmission Date: 20141002
  Serious: Yes (Hospitalization, Other)
  Sender: FDA-Public Use
  Company Number: GB-TAKEDA-2013TJP004222

PATIENT
  Sex: 0

DRUGS (4)
  1. LANSOPRAZOLE [Suspect]
     Indication: PRODUCT USED FOR UNKNOWN INDICATION
     Dosage: UNK
     Route: 065
  2. CO-AMOXICLAV [Suspect]
     Indication: PNEUMONIA ASPIRATION
     Dosage: 1.2 G, TID
     Route: 042
     Dates: start: 20110919, end: 20110923
  3. CO-AMOXICLAV [Suspect]
     Dosage: STAT DOSE
     Route: 042
     Dates: start: 20111003, end: 20111003
  4. FLUCLOXACILLIN [Suspect]
     Indication: PRODUCT USED FOR UNKNOWN INDICATION
     Dosage: 500 MG, QID
     Route: 048
     Dates: start: 20111010, end: 20111017

REACTIONS (1)
  - Clostridium difficile infection [Recovered/Resolved]
